FAERS Safety Report 6978666-1 (Version None)
Quarter: 2010Q3

REPORT INFORMATION
  Report Type: 
  Country: None (occurrence: None)
  Receive Date: 20100913
  Receipt Date: 20100901
  Transmission Date: 20110219
  Serious: Yes (Hospitalization)
  Sender: FDA-Public Use
  Company Number: A0860503A

PATIENT
  Age: 46 Year
  Sex: Female

DRUGS (7)
  1. AVANDIA [Suspect]
     Indication: DIABETES MELLITUS
     Dosage: 8MG PER DAY
     Dates: start: 19980101, end: 20050701
  2. LANTUS [Concomitant]
  3. TRICOR [Concomitant]
  4. TOPROL-XL [Concomitant]
  5. PRECOSE [Concomitant]
  6. MAVIK [Concomitant]
  7. ZOCOR [Concomitant]

REACTIONS (7)
  - CARDIAC FAILURE CONGESTIVE [None]
  - DYSPNOEA [None]
  - DYSPNOEA EXERTIONAL [None]
  - MYOCARDIAL INFARCTION [None]
  - NEOPLASM MALIGNANT [None]
  - OEDEMA [None]
  - WEIGHT INCREASED [None]
